FAERS Safety Report 11930091 (Version 1)
Quarter: 2016Q1

REPORT INFORMATION
  Report Type: Spontaneous
  Country: US (occurrence: None)
  Receive Date: 20160120
  Receipt Date: 20160120
  Transmission Date: 20160526
  Serious: Yes (Hospitalization)
  Sender: FDA-Public Use
  Company Number: None

PATIENT
  Age: 60 Year
  Sex: Male
  Weight: 128 kg

DRUGS (3)
  1. TOBRAMYCIN. [Suspect]
     Active Substance: TOBRAMYCIN
     Indication: INFECTION
     Dates: start: 20151209, end: 20151209
  2. CEMENT [Concomitant]
  3. SMARTSET GHV WITH GENTAMYCIN TOBRAMYCIN [Concomitant]

REACTIONS (9)
  - Nausea [None]
  - Hypotension [None]
  - Arthritis infective [None]
  - Echocardiogram abnormal [None]
  - Anuria [None]
  - Vomiting [None]
  - Myalgia [None]
  - Hypoxia [None]
  - Blood creatinine increased [None]

NARRATIVE: CASE EVENT DATE: 20151209
